FAERS Safety Report 8536511-7 (Version None)
Quarter: 2012Q3

REPORT INFORMATION
  Report Type: 
  Country: None (occurrence: None)
  Receive Date: 20120725
  Receipt Date: 20120723
  Transmission Date: 20120928
  Serious: Yes (Death, Other)
  Sender: FDA-Public Use
  Company Number: PHHY2012CA061109

PATIENT
  Sex: Female

DRUGS (10)
  1. COUMADIN [Concomitant]
  2. CALCIUM WITH VITAMIN D [Concomitant]
  3. ZOLEDRONOC ACID [Suspect]
     Indication: OSTEOPOROSIS
     Dosage: UNK UKN, UNK
     Route: 042
     Dates: start: 20111012
  4. TYLENOL [Concomitant]
  5. VITAMIN B-12 [Concomitant]
  6. FENTANYL [Concomitant]
  7. LASIX [Concomitant]
  8. OXYCODONE HCL [Concomitant]
  9. ATIVAN [Concomitant]
  10. OMEPRAZOLE (PRISOLEC) [Concomitant]

REACTIONS (5)
  - ACTINIC KERATOSIS [None]
  - DEATH [None]
  - OSTEOPOROTIC FRACTURE [None]
  - HYPERTENSION [None]
  - DEAFNESS [None]
